FAERS Safety Report 8500290-X (Version None)
Quarter: 2012Q3

REPORT INFORMATION
  Report Type: 
  Country: None (occurrence: None)
  Receive Date: 20120710
  Receipt Date: 20120626
  Transmission Date: 20120928
  Serious: No
  Sender: FDA-Public Use
  Company Number: US-ASTRAZENECA-2009SE15839

PATIENT
  Age: 47 Year
  Sex: Female
  Weight: 66.7 kg

DRUGS (14)
  1. ZOMIG [Suspect]
     Route: 048
  2. NEXIUM [Suspect]
     Indication: GASTRIC ULCER
     Route: 048
     Dates: start: 20100901
  3. ZOMIG [Suspect]
     Route: 048
  4. SEROQUEL [Suspect]
     Indication: INSOMNIA
     Route: 048
     Dates: start: 20080101
  5. SEROQUEL [Suspect]
     Indication: BIPOLAR I DISORDER
     Route: 048
     Dates: start: 20080101
  6. SEROQUEL [Suspect]
     Dosage: 400 TO 600 MG AT NIGHT
     Route: 048
  7. EFFEXOR [Concomitant]
  8. ZOMIG [Suspect]
     Indication: MIGRAINE
     Route: 048
     Dates: start: 20110201
  9. THORAZINE [Concomitant]
  10. SEROQUEL [Suspect]
     Dosage: 400 TO 600 MG AT NIGHT
     Route: 048
  11. SEROQUEL [Suspect]
     Dosage: 400 TO 600 MG AT NIGHT
     Route: 048
  12. XANAX [Concomitant]
  13. SEROQUEL [Suspect]
     Indication: BIPOLAR DISORDER
     Route: 048
     Dates: start: 20080101
  14. ZOMIG [Suspect]
     Route: 048

REACTIONS (10)
  - ULCER [None]
  - HEADACHE [None]
  - PHOTOPHOBIA [None]
  - SLEEP DISORDER [None]
  - DRUG DOSE OMISSION [None]
  - NASOPHARYNGITIS [None]
  - EYE DISORDER [None]
  - OFF LABEL USE [None]
  - MIGRAINE [None]
  - DRUG INEFFECTIVE [None]
